FAERS Safety Report 23396011 (Version 2)
Quarter: 2024Q1

REPORT INFORMATION
  Report Type: Spontaneous
  Country: US (occurrence: US)
  Receive Date: 20240112
  Receipt Date: 20240116
  Transmission Date: 20240410
  Serious: Yes (Other)
  Sender: FDA-Public Use
  Company Number: US-VIIV HEALTHCARE LIMITED-US2024001116

PATIENT
  Age: 70 Year
  Sex: Male

DRUGS (2)
  1. RILPIVIRINE [Suspect]
     Active Substance: RILPIVIRINE
     Indication: Product used for unknown indication
     Dosage: UNK
     Route: 065
  2. CABOTEGRAVIR [Suspect]
     Active Substance: CABOTEGRAVIR
     Indication: Product used for unknown indication
     Dosage: UNK
     Route: 065

REACTIONS (15)
  - Neuropathy peripheral [Unknown]
  - Hepatitis B [Unknown]
  - Sepsis [Unknown]
  - Pain [Unknown]
  - Hypoaesthesia [Unknown]
  - Varicella [Unknown]
  - Herpes zoster [Unknown]
  - Feeling cold [Unknown]
  - Discomfort [Unknown]
  - Paraesthesia [Unknown]
  - Chest discomfort [Unknown]
  - Gait disturbance [Unknown]
  - Mental disorder [Unknown]
  - Sensory disturbance [Unknown]
  - Scoliosis [Unknown]
